FAERS Safety Report 9365864 (Version 2)
Quarter: 2013Q3

REPORT INFORMATION
  Report Type: Report from Study
  Country: BR (occurrence: BR)
  Receive Date: 20130625
  Receipt Date: 20130820
  Transmission Date: 20140515
  Serious: Yes (Other)
  Sender: FDA-Public Use
  Company Number: PHHY2013BR063996

PATIENT
  Sex: Female
  Weight: 81 kg

DRUGS (5)
  1. SANDOSTATIN LAR (PATIENT BASIS) [Suspect]
     Indication: ACROMEGALY
     Dosage: 20 MG, QMO
     Route: 030
  2. SANDOSTATIN LAR (PATIENT BASIS) [Suspect]
     Indication: PITUITARY TUMOUR
     Dosage: 30 MG, QMO (1 AMPOULE PER MONTH)
     Route: 030
     Dates: end: 20130315
  3. METFORMIN [Concomitant]
     Indication: DIABETES MELLITUS
     Dosage: 2 TABLETS (850 MG) DAILY
     Route: 048
     Dates: start: 2011
  4. LOSARTAN [Concomitant]
     Indication: HYPERTENSION
     Dosage: 1 DF (50 MG) DAILY
     Route: 048
     Dates: start: 2011, end: 201306
  5. CAPTOPRIL [Concomitant]
     Dosage: UNK UKN, UNK

REACTIONS (5)
  - Epistaxis [Recovered/Resolved]
  - Cerebrospinal fluid leakage [Recovered/Resolved]
  - Sinusitis [Recovering/Resolving]
  - Cough [Recovered/Resolved]
  - Nasal oedema [Recovering/Resolving]
